FAERS Safety Report 4958174-X (Version None)
Quarter: 2006Q1

REPORT INFORMATION
  Report Type: 
  Country: None (occurrence: None)
  Receive Date: 20060330
  Receipt Date: 20060327
  Transmission Date: 20060701
  Serious: Yes (Disabling)
  Sender: FDA-Public Use
  Company Number: GB-MERCK-0603GBR00131

PATIENT
  Age: 59 Year
  Sex: Male
  Weight: 73 kg

DRUGS (2)
  1. ZOCOR [Suspect]
     Indication: HYPERLIPIDAEMIA
     Route: 048
     Dates: start: 20060207, end: 20060216
  2. ATORVASTATIN CALCIUM [Concomitant]
     Route: 065
     Dates: end: 20060201

REACTIONS (3)
  - HEADACHE [None]
  - MEMORY IMPAIRMENT [None]
  - SENSORY LOSS [None]
